FAERS Safety Report 10869028 (Version 1)
Quarter: 2015Q1

REPORT INFORMATION
  Report Type: Spontaneous
  Country: US (occurrence: US)
  Receive Date: 20150225
  Receipt Date: 20150225
  Transmission Date: 20150721
  Serious: No
  Sender: FDA-Public Use
  Company Number: US-TEVA-543223USA

PATIENT
  Sex: Female

DRUGS (1)
  1. COPAXONE [Suspect]
     Active Substance: GLATIRAMER ACETATE
     Indication: MULTIPLE SCLEROSIS
     Dosage: UNKNOWN DOSAGE FORM
     Route: 065

REACTIONS (6)
  - Flushing [Unknown]
  - Vomiting projectile [Unknown]
  - Swelling face [Unknown]
  - Abdominal discomfort [Unknown]
  - Motor dysfunction [Unknown]
  - Feeling cold [Unknown]
